FAERS Safety Report 8016936-9 (Version None)
Quarter: 2012Q1

REPORT INFORMATION
  Report Type: 
  Country: None (occurrence: None)
  Receive Date: 20120102
  Receipt Date: 20111223
  Transmission Date: 20120608
  Serious: Yes (Hospitalization)
  Sender: FDA-Public Use
  Company Number: PHHY2011DE104978

PATIENT
  Sex: Female
  Weight: 85 kg

DRUGS (17)
  1. ZOMETA [Suspect]
     Dosage: 4 MG, UNK
     Route: 042
     Dates: start: 20110301
  2. ZOMETA [Suspect]
     Dosage: 4 MG, UNK
     Route: 042
     Dates: start: 20111122
  3. ABRAXANE [Concomitant]
     Dosage: 491 MG, REPEATED ON DAY 22
     Dates: start: 20110912
  4. ONDANSETRON [Concomitant]
     Indication: VOMITING
     Dates: start: 20080214
  5. ZOMETA [Suspect]
     Indication: METASTASES TO BONE
     Dosage: 4 MG, UNK
     Route: 042
     Dates: start: 20100907
  6. ZOMETA [Suspect]
     Dosage: 4 MG, UNK
     Route: 042
     Dates: start: 20110104
  7. CITALOPRAM HYDROBROMIDE [Concomitant]
     Indication: ANTIDEPRESSANT THERAPY
     Route: 048
     Dates: start: 20110722
  8. ZOMETA [Suspect]
     Dosage: 4 MG, UNK
     Route: 042
     Dates: start: 20101102
  9. ZOMETA [Suspect]
     Dosage: 4 MG, UNK
     Route: 042
     Dates: start: 20110201
  10. ZOMETA [Suspect]
     Dosage: 4 MG, UNK
     Route: 042
     Dates: start: 20110426
  11. ZOMETA [Suspect]
     Dosage: 4 MG, UNK
     Route: 042
     Dates: start: 20111027
  12. ZOMETA [Suspect]
     Dosage: 4 MG, UNK
     Route: 042
     Dates: start: 20110628
  13. GEMCITABINE [Concomitant]
     Dosage: UNK UKN, UNK
     Dates: start: 20100922
  14. ZOMETA [Suspect]
     Dosage: 4 MG, UNK
     Route: 042
     Dates: start: 20110526
  15. ZOMETA [Suspect]
     Dosage: 4 MG, UNK
     Route: 042
     Dates: start: 20110722
  16. ZOMETA [Suspect]
     Dosage: 4 MG, UNK
     Route: 042
     Dates: start: 20110329
  17. CARBOPLATIN [Concomitant]
     Dosage: UNK UKN, UNK
     Dates: start: 20100922

REACTIONS (5)
  - PORTAL VEIN THROMBOSIS [None]
  - MUSCULAR WEAKNESS [None]
  - DISEASE PROGRESSION [None]
  - CEREBRAL DISORDER [None]
  - DIPLOPIA [None]
